FAERS Safety Report 15789025 (Version 2)
Quarter: 2019Q1

REPORT INFORMATION
  Report Type: Report from Study
  Country: IL (occurrence: IL)
  Receive Date: 20190104
  Receipt Date: 20190116
  Transmission Date: 20190417
  Serious: Yes (Other)
  Sender: FDA-Public Use
  Company Number: IL-NOVOPROD-636257

PATIENT
  Age: 11 Year
  Sex: Female
  Weight: 34 kg

DRUGS (2)
  1. NORDITROPIN [Suspect]
     Active Substance: SOMATROPIN
     Dosage: 1 MG, QD
     Route: 058
     Dates: end: 20181225
  2. NORDITROPIN [Suspect]
     Active Substance: SOMATROPIN
     Indication: GROWTH HORMONE DEFICIENCY
     Dosage: 1 MG, QD
     Route: 058
     Dates: start: 20181125

REACTIONS (3)
  - Papilloedema [Recovering/Resolving]
  - Injection site haemorrhage [Unknown]
  - Underdose [Unknown]

NARRATIVE: CASE EVENT DATE: 20181205
